FAERS Safety Report 23360778 (Version 6)
Quarter: 2025Q3

REPORT INFORMATION
  Report Type: Spontaneous
  Country: EU (occurrence: EU)
  Receive Date: 20240103
  Receipt Date: 20250812
  Transmission Date: 20251021
  Serious: Yes (Hospitalization, Other)
  Sender: MYLAN
  Company Number: EU-VA000000599-2023001655

PATIENT
  Age: 61 Year
  Sex: Male

DRUGS (13)
  1. TRAMADOL [Interacting]
     Active Substance: TRAMADOL
     Indication: Analgesic therapy
     Dosage: 50 MILLIGRAM, TID (150 MG, QD)
  2. TRAMADOL [Interacting]
     Active Substance: TRAMADOL
     Indication: Pain
  3. TRAMADOL [Interacting]
     Active Substance: TRAMADOL
     Indication: Hypervolaemia
  4. CEFTRIAXONE [Suspect]
     Active Substance: CEFTRIAXONE
     Indication: Antibiotic therapy
     Dosage: 20 GRAM, QD
  5. CEFTRIAXONE [Suspect]
     Active Substance: CEFTRIAXONE
     Indication: Hypervolaemia
     Dosage: 2 GRAM, QD
  6. CEFTRIAXONE [Suspect]
     Active Substance: CEFTRIAXONE
  7. LEVOFLOXACIN [Interacting]
     Active Substance: LEVOFLOXACIN
     Indication: Antibiotic therapy
     Dosage: 500 MILLIGRAM, BID (1000 MG, QD)
  8. LEVOFLOXACIN [Interacting]
     Active Substance: LEVOFLOXACIN
     Indication: Pleural effusion
  9. LEVOFLOXACIN [Interacting]
     Active Substance: LEVOFLOXACIN
     Indication: Hypervolaemia
  10. ACETAMINOPHEN [Suspect]
     Active Substance: ACETAMINOPHEN
     Indication: Analgesic therapy
     Dosage: 500 MILLIGRAM, QID (2000 MILLIGRAM, ONCE A DAY)
  11. ACETAMINOPHEN [Suspect]
     Active Substance: ACETAMINOPHEN
     Indication: Pain
  12. ACETAMINOPHEN [Suspect]
     Active Substance: ACETAMINOPHEN
     Indication: Hypervolaemia
  13. CEFIXIME [Concomitant]
     Active Substance: CEFIXIME
     Indication: Product used for unknown indication

REACTIONS (5)
  - Epilepsy [Recovered/Resolved]
  - Generalised tonic-clonic seizure [Recovered/Resolved]
  - Seizure [Recovered/Resolved]
  - Drug interaction [Recovered/Resolved]
  - C-reactive protein increased [Recovered/Resolved]
